FAERS Safety Report 5288759-5 (Version None)
Quarter: 2007Q2

REPORT INFORMATION
  Report Type: 
  Country: None (occurrence: None)
  Receive Date: 20070405
  Receipt Date: 20070330
  Transmission Date: 20071010
  Serious: Yes (Death, Hospitalization)
  Sender: FDA-Public Use
  Company Number: US-SANOFI-SYNTHELABO-A03200702507

PATIENT
  Age: 4 Day
  Sex: Male
  Weight: 2.95 kg

DRUGS (3)
  1. ELITEK [Suspect]
     Indication: HYPERURICAEMIA
     Dosage: 0.1 MG/KG REPEATED 12 HOURS LATER
     Route: 042
  2. ELITEK [Suspect]
     Dosage: 0.2 MG/KG (GIVEN AT 6, 14, 23 AND 34 H AFTER DAUNORUBICIN)
     Route: 042
  3. DAUNORUBICIN HCL [Concomitant]
     Indication: CHEMOTHERAPY
     Dosage: 2 MG/KG
     Route: 042

REACTIONS (7)
  - BRADYCARDIA [None]
  - CARDIOPULMONARY FAILURE [None]
  - ELECTROLYTE IMBALANCE [None]
  - FLUID OVERLOAD [None]
  - HYPERKALAEMIA [None]
  - METABOLIC ABNORMALITY MANAGEMENT [None]
  - OLIGURIA [None]
